FAERS Safety Report 11545290 (Version 1)
Quarter: 2015Q3

REPORT INFORMATION
  Report Type: Spontaneous
  Country: GR (occurrence: GR)
  Receive Date: 20150924
  Receipt Date: 20150924
  Transmission Date: 20151125
  Serious: Yes (Hospitalization)
  Sender: FDA-Public Use
  Company Number: GR-SA-2015SA142191

PATIENT
  Age: 66 Year
  Sex: Female

DRUGS (3)
  1. SALOSPIR [Concomitant]
     Active Substance: ASPIRIN\CAFFEINE
  2. ARAVA [Suspect]
     Active Substance: LEFLUNOMIDE
     Route: 065
     Dates: start: 201408
  3. CORTISONE [Concomitant]
     Active Substance: CORTISONE\HYDROCORTISONE
     Dosage: MANY YEARS

REACTIONS (4)
  - Infection [Unknown]
  - Platelet count decreased [Unknown]
  - Nasopharyngitis [Unknown]
  - Haematocrit decreased [Unknown]
